FAERS Safety Report 24274138 (Version 1)
Quarter: 2024Q3

REPORT INFORMATION
  Report Type: Spontaneous
  Country: CN (occurrence: CN)
  Receive Date: 20240902
  Receipt Date: 20240902
  Transmission Date: 20241016
  Serious: Yes (Other)
  Sender: NOVARTIS
  Company Number: CN-002147023-NVSC2024CN176197

PATIENT
  Age: 58 Year
  Sex: Female
  Weight: 41 kg

DRUGS (2)
  1. PAZOPANIB [Suspect]
     Active Substance: PAZOPANIB
     Indication: Neoplasm
     Dosage: 0.600 G, QD
     Route: 048
     Dates: start: 20240715, end: 20240724
  2. PAZOPANIB [Suspect]
     Active Substance: PAZOPANIB
     Indication: Uterine cancer

REACTIONS (1)
  - Myelosuppression [Recovering/Resolving]

NARRATIVE: CASE EVENT DATE: 20240723
